FAERS Safety Report 22028603 (Version 1)
Quarter: 2023Q1

REPORT INFORMATION
  Report Type: Spontaneous
  Country: IN (occurrence: IN)
  Receive Date: 20230223
  Receipt Date: 20230223
  Transmission Date: 20230418
  Serious: Yes (Hospitalization, Other)
  Sender: FDA-Public Use
  Company Number: IN-PFIZER INC-PV202200129963

PATIENT
  Age: 1 Day
  Sex: Female
  Weight: 1.14 kg

DRUGS (25)
  1. MEROPENEM [Suspect]
     Active Substance: MEROPENEM
     Indication: Klebsiella infection
     Dosage: UNK
  2. MEROPENEM [Suspect]
     Active Substance: MEROPENEM
     Indication: Septic shock
     Dosage: 20 MG/KG, 2X/DAY
  3. PIPERACILLIN SODIUM\TAZOBACTAM SODIUM [Suspect]
     Active Substance: PIPERACILLIN SODIUM\TAZOBACTAM SODIUM
     Indication: Septic shock
     Dosage: UNK
  4. COLISTIN [Suspect]
     Active Substance: COLISTIN
     Indication: Klebsiella infection
     Dosage: UNK
  5. COLISTIN [Suspect]
     Active Substance: COLISTIN
     Indication: Septic shock
     Dosage: 2.5 MG/KG, DAILY (Q12H)
  6. AMIKACIN [Suspect]
     Active Substance: AMIKACIN
     Indication: Septic shock
     Dosage: UNK
  7. HYDROCORTISONE [Concomitant]
     Active Substance: HYDROCORTISONE
     Indication: Septic shock
     Dosage: UNK
  8. VITAMIN K [Concomitant]
     Active Substance: PHYTONADIONE
     Indication: Coagulopathy
     Dosage: UNK
  9. LEVETIRACETAM [Concomitant]
     Active Substance: LEVETIRACETAM
     Indication: Seizure
     Dosage: UNK
  10. LEVETIRACETAM [Concomitant]
     Active Substance: LEVETIRACETAM
     Indication: Myoclonus
  11. PHENOBARBITAL [Concomitant]
     Active Substance: PHENOBARBITAL
     Indication: Seizure
     Dosage: UNK
  12. PHENOBARBITAL [Concomitant]
     Active Substance: PHENOBARBITAL
     Indication: Myoclonus
  13. FLUCONAZOLE [Concomitant]
     Active Substance: FLUCONAZOLE
     Indication: Systemic candida
     Dosage: UNK
     Route: 042
  14. EPINEPHRINE [Concomitant]
     Active Substance: EPINEPHRINE
     Indication: Septic shock
     Dosage: 0.4 MCG/KG/MIN
  15. NOREPINEPHRINE [Concomitant]
     Active Substance: NOREPINEPHRINE
     Indication: Septic shock
     Dosage: 0.3 MCG/KG/MIN
  16. DOPAMINE [Concomitant]
     Active Substance: DOPAMINE HYDROCHLORIDE
     Indication: Septic shock
     Dosage: 20 MCG/KG/MIN
  17. VASOPRESSIN [Concomitant]
     Active Substance: VASOPRESSIN
     Indication: Septic shock
     Dosage: 0.002 MCG/KG/MIN
  18. VANCOMYCIN [Concomitant]
     Active Substance: VANCOMYCIN
     Indication: Klebsiella infection
     Dosage: 15 MG/KG (Q48H)
     Route: 042
  19. AMPHOTERICIN B [Concomitant]
     Active Substance: AMPHOTERICIN B
     Indication: Klebsiella infection
     Dosage: 1 MG/KG, DAILY (LIPOSOMAL)
  20. CALCIUM GLUCONATE [Concomitant]
     Active Substance: CALCIUM GLUCONATE
     Indication: Hyperkalaemia
     Dosage: UNK
  21. CALCIUM GLUCONATE [Concomitant]
     Active Substance: CALCIUM GLUCONATE
     Indication: Metabolic acidosis
  22. INSULIN NOS [Concomitant]
     Active Substance: INSULIN NOS
     Indication: Hyperkalaemia
     Dosage: UNK
  23. INSULIN NOS [Concomitant]
     Active Substance: INSULIN NOS
     Indication: Metabolic acidosis
  24. SODIUM BICARBONATE [Concomitant]
     Active Substance: SODIUM BICARBONATE
     Indication: Hyperkalaemia
     Dosage: UNK
  25. SODIUM BICARBONATE [Concomitant]
     Active Substance: SODIUM BICARBONATE
     Indication: Metabolic acidosis

REACTIONS (3)
  - Fungaemia [Unknown]
  - Aureobasidium pullulans infection [Unknown]
  - Off label use [Unknown]
